FAERS Safety Report 14482367 (Version 1)
Quarter: 2018Q1

REPORT INFORMATION
  Report Type: Spontaneous
  Country: US (occurrence: US)
  Receive Date: 20180202
  Receipt Date: 20180202
  Transmission Date: 20180509
  Serious: Yes (Hospitalization, Other)
  Sender: FDA-Public Use
  Company Number: US-BIOGEN-2018BI00517978

PATIENT
  Age: 49 Year
  Sex: Female

DRUGS (2)
  1. ASPIRIN. [Concomitant]
     Active Substance: ASPIRIN
     Indication: PRODUCT USED FOR UNKNOWN INDICATION
     Route: 065
  2. TYSABRI [Suspect]
     Active Substance: NATALIZUMAB
     Indication: MULTIPLE SCLEROSIS
     Route: 065

REACTIONS (13)
  - Complication associated with device [Unknown]
  - Scar [Unknown]
  - Splenectomy [Unknown]
  - Vein disorder [Unknown]
  - Gait disturbance [Unknown]
  - Peripheral swelling [Unknown]
  - Road traffic accident [Recovered/Resolved]
  - Autoimmune disorder [Unknown]
  - Infusion site extravasation [Unknown]
  - Deafness [Unknown]
  - Crohn^s disease [Unknown]
  - Disorientation [Unknown]
  - Anaphylactic reaction [Unknown]

NARRATIVE: CASE EVENT DATE: 20180123
